FAERS Safety Report 7396099-3 (Version None)
Quarter: 2011Q2

REPORT INFORMATION
  Report Type: 
  Country: None (occurrence: None)
  Receive Date: 20110406
  Receipt Date: 20090514
  Transmission Date: 20111010
  Serious: Yes (Hospitalization, Other)
  Sender: FDA-Public Use
  Company Number: US-BAYER-200920987NA

PATIENT
  Sex: Female
  Weight: 87.075 kg

DRUGS (20)
  1. TRASYLOL [Suspect]
     Indication: AORTIC VALVE REPLACEMENT
  2. NIMBEX [Concomitant]
     Dosage: UNK
     Route: 042
     Dates: start: 20051006, end: 20051006
  3. ATENOLOL [Concomitant]
     Dosage: UNK
     Route: 048
     Dates: start: 20050407, end: 20050921
  4. NITROGLYCERIN [Concomitant]
     Dosage: UNK
     Route: 060
     Dates: start: 20050930
  5. K-DUR [Concomitant]
     Dosage: UNK
     Route: 048
     Dates: start: 20050929
  6. TRASYLOL [Suspect]
     Indication: CORONARY ARTERY BYPASS
     Dosage: LOADING DOSE- 200ML PRIME PUMP
     Route: 042
     Dates: start: 20051006, end: 20051006
  7. LIPITOR [Concomitant]
     Dosage: UNK
     Route: 048
     Dates: start: 20050513, end: 20050921
  8. PRIMACOR [Concomitant]
     Dosage: UNK
     Route: 042
     Dates: start: 20051006, end: 20051006
  9. MANNITOL [Concomitant]
     Dosage: UNK
     Dates: start: 20051006, end: 20051006
  10. FUROSEMIDE [Concomitant]
     Dosage: UNK
     Dates: start: 20040610, end: 20051220
  11. METFORMIN [Concomitant]
     Dosage: UNK
     Route: 048
     Dates: start: 20050407, end: 20050921
  12. PROTAMINE SULFATE [Concomitant]
     Dosage: UNK
     Dates: start: 20051006, end: 20051006
  13. AVALIDE [Concomitant]
     Dosage: UNK
     Route: 048
     Dates: start: 20040610, end: 20051220
  14. TRASYLOL [Suspect]
     Indication: MITRAL VALVE REPLACEMENT
  15. HYDROCHLOROTHIAZIDE [Concomitant]
     Dosage: UNK
     Route: 048
     Dates: start: 20050929
  16. AVAPRO [Concomitant]
     Dosage: UNK
     Route: 048
     Dates: start: 20050929
  17. ACETYLSALICYLIC ACID SRT [Concomitant]
     Dosage: UNK
     Route: 048
  18. HEPARIN SODIUM [Concomitant]
     Dosage: UNK
     Dates: start: 20051006, end: 20051006
  19. INSULIN [Concomitant]
     Dosage: UNK
     Route: 042
     Dates: start: 20051006, end: 20051006
  20. ALBUMIN (HUMAN) [Concomitant]
     Dosage: UNK
     Dates: start: 20061006, end: 20061006

REACTIONS (12)
  - ANXIETY [None]
  - INJURY [None]
  - RESPIRATORY FAILURE [None]
  - EMOTIONAL DISTRESS [None]
  - PAIN [None]
  - STRESS [None]
  - RENAL FAILURE [None]
  - RENAL IMPAIRMENT [None]
  - RENAL INJURY [None]
  - UNEVALUABLE EVENT [None]
  - FEAR [None]
  - ANHEDONIA [None]
